FAERS Safety Report 7577302-3 (Version None)
Quarter: 2011Q2

REPORT INFORMATION
  Report Type: 
  Country: None (occurrence: None)
  Receive Date: 20110628
  Receipt Date: 20110509
  Transmission Date: 20111010
  Serious: No
  Sender: FDA-Public Use
  Company Number: US-BAYER-2011-041803

PATIENT
  Age: 29 Year
  Sex: Female

DRUGS (6)
  1. ALEVE (CAPLET) [Suspect]
     Dosage: 1 DF, ONCE, BOTTLE COUNT 24S
     Route: 048
     Dates: start: 20110509
  2. GLYBURIDE [Concomitant]
  3. METFORMIN HCL [Concomitant]
  4. FENOFIBRATE [Concomitant]
  5. AMLODIPINE [Concomitant]
  6. NEURONTIN [Concomitant]

REACTIONS (8)
  - HYPERSENSITIVITY [None]
  - HYPOAESTHESIA [None]
  - HYPOAESTHESIA FACIAL [None]
  - PARAESTHESIA [None]
  - SKIN WARM [None]
  - ERYTHEMA [None]
  - FEELING COLD [None]
  - LIP SWELLING [None]
